FAERS Safety Report 10384085 (Version 2)
Quarter: 2014Q3

REPORT INFORMATION
  Report Type: Spontaneous
  Country: US (occurrence: US)
  Receive Date: 20140814
  Receipt Date: 20140930
  Transmission Date: 20150326
  Serious: Yes (Hospitalization, Other)
  Sender: FDA-Public Use
  Company Number: US-JNJFOC-20140805654

PATIENT
  Age: 47 Year
  Sex: Male
  Weight: 97.52 kg

DRUGS (13)
  1. BRILINTA [Concomitant]
     Active Substance: TICAGRELOR
     Route: 065
  2. NITROSTAT [Concomitant]
     Active Substance: NITROGLYCERIN
     Route: 065
     Dates: start: 20140609
  3. SILVADENE [Concomitant]
     Active Substance: SILVER SULFADIAZINE
     Dosage: 1 APPLICATION APPLY ON THE SKIN TWICE A DAY
     Route: 061
     Dates: start: 20140428
  4. TRIAMCINOLONE ACETONIDE. [Concomitant]
     Active Substance: TRIAMCINOLONE ACETONIDE
     Route: 061
     Dates: start: 20140428
  5. STELARA [Suspect]
     Active Substance: USTEKINUMAB
     Indication: PSORIASIS
     Route: 058
     Dates: start: 201011, end: 20130124
  6. ENALAPRIL MALEATE. [Concomitant]
     Active Substance: ENALAPRIL MALEATE
     Route: 065
     Dates: start: 20140731
  7. LYRICA [Concomitant]
     Active Substance: PREGABALIN
     Route: 065
     Dates: start: 20130910
  8. STELARA [Suspect]
     Active Substance: USTEKINUMAB
     Indication: PSORIASIS
     Route: 058
     Dates: start: 20101120
  9. DULOXETINE [Concomitant]
     Active Substance: DULOXETINE
     Route: 065
  10. ORACEA [Concomitant]
     Active Substance: DOXYCYCLINE
     Route: 065
     Dates: start: 20140428
  11. METOPROLOL TARTRATE. [Concomitant]
     Active Substance: METOPROLOL TARTRATE
     Route: 065
     Dates: start: 20140731
  12. CYMBALTA [Concomitant]
     Active Substance: DULOXETINE HYDROCHLORIDE
     Route: 065
     Dates: start: 20130910
  13. NEXIUM [Concomitant]
     Active Substance: ESOMEPRAZOLE MAGNESIUM
     Route: 065
     Dates: start: 20130910

REACTIONS (1)
  - Myocardial infarction [Recovering/Resolving]

NARRATIVE: CASE EVENT DATE: 20140606
